FAERS Safety Report 4475447-8 (Version None)
Quarter: 2004Q4

REPORT INFORMATION
  Report Type: 
  Country: None (occurrence: None)
  Receive Date: 20041015
  Receipt Date: 20041006
  Transmission Date: 20050328
  Serious: Yes (Other)
  Sender: FDA-Public Use
  Company Number: DE-ROCHE-382685

PATIENT
  Age: 63 Year
  Sex: Female
  Weight: 74 kg

DRUGS (3)
  1. PEG-INTERFERON A-2A (RO 25-8310) [Suspect]
     Route: 058
     Dates: start: 20040109, end: 20040404
  2. PEG-INTERFERON A-2A (RO 25-8310) [Suspect]
     Dosage: REDUCED
     Route: 058
     Dates: start: 20040405, end: 20040621
  3. REBETOL [Concomitant]
     Route: 048
     Dates: start: 20040109

REACTIONS (8)
  - ANAEMIA [None]
  - LEUKOPENIA [None]
  - MOOD ALTERED [None]
  - MOOD SWINGS [None]
  - MYALGIA [None]
  - PAIN IN EXTREMITY [None]
  - PERFORMANCE STATUS DECREASED [None]
  - THROMBOCYTOPENIA [None]
